FAERS Safety Report 8788699 (Version 3)
Quarter: 2012Q4

REPORT INFORMATION
  Report Type: Report from Study
  Country: DE (occurrence: DE)
  Receive Date: 20120915
  Receipt Date: 20121214
  Transmission Date: 20130627
  Serious: Yes (Hospitalization)
  Sender: FDA-Public Use
  Company Number: DE-ABBOTT-12P-062-0976159-00

PATIENT
  Age: 13 Year
  Sex: Female
  Weight: 46 kg

DRUGS (11)
  1. HUMIRA [Suspect]
     Indication: JUVENILE ARTHRITIS
     Route: 058
     Dates: start: 20120227, end: 20120802
  2. HUMIRA [Suspect]
     Route: 058
     Dates: start: 20120822, end: 201211
  3. FOLIC ACID [Concomitant]
     Indication: VITAMIN SUPPLEMENTATION
     Dates: start: 20111219
  4. NOVAMINSULFON [Concomitant]
     Indication: ARTHRALGIA
     Dates: start: 20100715
  5. METEX [Concomitant]
     Indication: JUVENILE ARTHRITIS
     Dates: start: 20111218
  6. METEX [Concomitant]
  7. OSTAC [Concomitant]
     Indication: OSTEOPOROSIS
     Dates: start: 20120416, end: 20120821
  8. OSTAC [Concomitant]
     Indication: BACK PAIN
  9. ENALAPRIL [Concomitant]
     Indication: HYPERTONIA
     Dates: start: 20120719
  10. FLUTIDE JUNIOR MITE [Concomitant]
     Indication: ASTHMA
     Dates: start: 20100110
  11. RANITIDINE [Concomitant]
     Indication: GASTROENTERITIS
     Dates: start: 20100527

REACTIONS (3)
  - Glomerulonephritis [Not Recovered/Not Resolved]
  - Tonsillitis [Recovered/Resolved]
  - Urticaria [Recovered/Resolved]
